FAERS Safety Report 9744905 (Version 3)
Quarter: 2013Q4

REPORT INFORMATION
  Report Type: Spontaneous
  Country: JP (occurrence: JP)
  Receive Date: 20131211
  Receipt Date: 20131224
  Transmission Date: 20140711
  Serious: Yes (Other)
  Sender: FDA-Public Use
  Company Number: JP-009507513-1312JPN003606

PATIENT
  Age: 44 Year
  Sex: Female

DRUGS (9)
  1. PEGINTRON [Suspect]
     Indication: CHRONIC HEPATITIS C
     Dosage: AT 44 YEARS OLD
     Route: 058
  2. PEGINTRON [Suspect]
     Dosage: 70 MICROGRAM 1WEEK
     Route: 058
  3. PEGINTRON [Suspect]
     Dosage: 30 MICROGRAM 1WEEK
     Route: 058
  4. PEGINTRON [Suspect]
     Dosage: 50 MICROGRAM 1WEEK
     Route: 058
  5. REBETOL [Suspect]
     Indication: CHRONIC HEPATITIS C
     Dosage: AT 44 YEARS OLD
     Route: 048
  6. REBETOL [Suspect]
     Dosage: 600 MG DAILY
     Route: 048
  7. REBETOL [Suspect]
     Dosage: 400 MG DAILY
     Route: 048
  8. INTRON A POWDER FOR INJECTION 300 [Suspect]
     Indication: CHRONIC HEPATITIS C
     Dosage: AT 44 YEARS OLD
     Route: 030
  9. TELAVIC [Suspect]
     Indication: CHRONIC HEPATITIS C
     Dosage: 1500MG DIALY
     Route: 048

REACTIONS (12)
  - Immune thrombocytopenic purpura [Recovering/Resolving]
  - Drug ineffective [Unknown]
  - Platelet count decreased [Unknown]
  - Neutrophil count decreased [Unknown]
  - Transaminases increased [Unknown]
  - Hyperuricaemia [Unknown]
  - Erythema [Unknown]
  - Hyperkeratosis [Unknown]
  - Anaemia [Unknown]
  - Decreased appetite [Unknown]
  - Diarrhoea [Unknown]
  - Dehydration [Unknown]
